FAERS Safety Report 5046880-0 (Version None)
Quarter: 2006Q3

REPORT INFORMATION
  Report Type: 
  Country: None (occurrence: None)
  Receive Date: 20060710
  Receipt Date: 20060612
  Transmission Date: 20061208
  Serious: Yes (Hospitalization, Other)
  Sender: FDA-Public Use
  Company Number: JP-ABBOTT-06P-087-0335723-00

PATIENT
  Sex: Female

DRUGS (4)
  1. CEFZON FINE GRANULE [Suspect]
     Indication: PHARYNGITIS
     Route: 048
     Dates: start: 20040616, end: 20040618
  2. ANHIBA [Suspect]
     Indication: PYREXIA
     Route: 054
     Dates: start: 20040626, end: 20040626
  3. CEFPODOXIME PROXETIL [Suspect]
     Indication: DRUG USE FOR UNKNOWN INDICATION
     Route: 048
     Dates: start: 20040627
  4. PARACETAMOL [Suspect]
     Indication: DRUG USE FOR UNKNOWN INDICATION
     Route: 048
     Dates: start: 20040627

REACTIONS (2)
  - HEPATOCELLULAR DAMAGE [None]
  - TOXIC EPIDERMAL NECROLYSIS [None]
